FAERS Safety Report 5627026-4 (Version None)
Quarter: 2008Q1

REPORT INFORMATION
  Report Type: 
  Country: None (occurrence: None)
  Receive Date: 20080117
  Receipt Date: 20061205
  Transmission Date: 20080703
  Serious: Yes (Hospitalization)
  Sender: FDA-Public Use
  Company Number: E2020-00768-SPO-US

PATIENT
  Age: 76 Year
  Sex: Female
  Weight: 55 kg

DRUGS (10)
  1. ARICEPT [Suspect]
     Indication: SENILE DEMENTIA
     Dosage: 10 MG, 1 IN 1 D, ORAL ; 5 MG 1 IN 1 D, ORAL ; 10 MG, 1 IN 1 D, ORAL
     Route: 048
     Dates: start: 20061001, end: 20061001
  2. ARICEPT [Suspect]
     Indication: SENILE DEMENTIA
     Dosage: 10 MG, 1 IN 1 D, ORAL ; 5 MG 1 IN 1 D, ORAL ; 10 MG, 1 IN 1 D, ORAL
     Route: 048
     Dates: start: 20061025, end: 20061001
  3. ARICEPT [Suspect]
     Indication: SENILE DEMENTIA
     Dosage: 10 MG, 1 IN 1 D, ORAL ; 5 MG 1 IN 1 D, ORAL ; 10 MG, 1 IN 1 D, ORAL
     Route: 048
     Dates: start: 20061108, end: 20061110
  4. PLAVIX [Concomitant]
  5. LISINOPRIL [Concomitant]
  6. LOVASTATIN [Concomitant]
  7. SOTALOL HCL [Concomitant]
  8. MULTIVITAMIN (MULTIVITAMIN) [Concomitant]
  9. IRON (IRON) [Concomitant]
  10. ASPIRIN [Concomitant]

REACTIONS (6)
  - ASTHENIA [None]
  - DIZZINESS [None]
  - EYE PAIN [None]
  - FEELING HOT [None]
  - HEADACHE [None]
  - SYNCOPE [None]
